FAERS Safety Report 4683509-5 (Version None)
Quarter: 2005Q2

REPORT INFORMATION
  Report Type: 
  Country: None (occurrence: None)
  Receive Date: 20050606
  Receipt Date: 20050606
  Transmission Date: 20051028
  Serious: Yes (Other)
  Sender: FDA-Public Use
  Company Number: None

PATIENT
  Age: 60 Year
  Sex: Female
  Weight: 49.8957 kg

DRUGS (2)
  1. VERSED [Suspect]
     Indication: SEDATIVE THERAPY
     Dosage: 5 MG   INTRAVENOU
     Route: 042
     Dates: start: 20050602, end: 20050602
  2. DEMEROL [Suspect]
     Dosage: 75 MG      INTRAVENOU
     Route: 042
     Dates: start: 20050603, end: 20050603

REACTIONS (1)
  - DRUG INEFFECTIVE [None]
